FAERS Safety Report 9728261 (Version 3)
Quarter: 2013Q4

REPORT INFORMATION
  Report Type: Spontaneous
  Country: GB (occurrence: GB)
  Receive Date: 20131204
  Receipt Date: 20131220
  Transmission Date: 20140711
  Serious: Yes (Hospitalization, Other)
  Sender: FDA-Public Use
  Company Number: US-ASTRAZENECA-2013SE84427

PATIENT
  Age: 74 Year
  Sex: Female
  Weight: 62 kg

DRUGS (11)
  1. AMIAS [Suspect]
     Indication: PRODUCT USED FOR UNKNOWN INDICATION
     Route: 048
  2. AMIAS [Suspect]
     Indication: PRODUCT USED FOR UNKNOWN INDICATION
     Route: 048
  3. AMIAS [Suspect]
     Indication: PRODUCT USED FOR UNKNOWN INDICATION
     Route: 048
  4. AMIAS [Suspect]
     Indication: PRODUCT USED FOR UNKNOWN INDICATION
     Route: 048
  5. AMIAS [Suspect]
     Indication: PRODUCT USED FOR UNKNOWN INDICATION
     Route: 048
     Dates: end: 20131106
  6. AMIAS [Suspect]
     Indication: PRODUCT USED FOR UNKNOWN INDICATION
     Dosage: DOSE WAS INCREASED
     Route: 048
  7. AMIAS [Suspect]
     Indication: PRODUCT USED FOR UNKNOWN INDICATION
     Route: 048
  8. AMIAS [Suspect]
     Indication: PRODUCT USED FOR UNKNOWN INDICATION
     Route: 048
  9. AMIAS [Suspect]
     Indication: PRODUCT USED FOR UNKNOWN INDICATION
     Route: 048
     Dates: start: 20110617
  10. AMIAS [Suspect]
     Indication: PRODUCT USED FOR UNKNOWN INDICATION
     Dosage: GENERIC
     Route: 048
     Dates: start: 20131018
  11. AMIAS [Suspect]
     Indication: PRODUCT USED FOR UNKNOWN INDICATION
     Dosage: DECREASED DOSE
     Route: 048
     Dates: end: 20131120

REACTIONS (6)
  - Chest discomfort [Unknown]
  - Heart rate irregular [Unknown]
  - Heart rate decreased [Unknown]
  - Muscular weakness [Unknown]
  - Feeling abnormal [Unknown]
  - Back pain [Recovering/Resolving]
